FAERS Safety Report 4268825-3 (Version None)
Quarter: 2004Q1

REPORT INFORMATION
  Report Type: 
  Country: None (occurrence: None)
  Receive Date: 20040109
  Receipt Date: 20031230
  Transmission Date: 20041129
  Serious: Yes (Other)
  Sender: FDA-Public Use
  Company Number: A-CH2003-04130

PATIENT
  Age: 73 Year
  Sex: Female

DRUGS (9)
  1. TRACLEER [Suspect]
     Indication: PULMONARY HYPERTENSION
     Dosage: SEE IMAGE
     Route: 048
     Dates: start: 20030514, end: 20030610
  2. TRACLEER [Suspect]
     Indication: PULMONARY HYPERTENSION
     Dosage: SEE IMAGE
     Route: 048
     Dates: start: 20030611, end: 20031223
  3. LASIX [Concomitant]
  4. PREVISCAN (FLUINDIONE) [Concomitant]
  5. PREDNISONE [Concomitant]
  6. INIPOMP (PANTOPRAZOLE) [Concomitant]
  7. POTASSIUM CHLORIDE [Concomitant]
  8. OROCAL (CALCIUM CARBONATE) [Concomitant]
  9. PRAXILENE (NAFTIDROFURYL OXALATE) [Concomitant]

REACTIONS (6)
  - ALANINE AMINOTRANSFERASE INCREASED [None]
  - ASPARTATE AMINOTRANSFERASE INCREASED [None]
  - BLOOD ALKALINE PHOSPHATASE INCREASED [None]
  - BLOOD BILIRUBIN INCREASED [None]
  - GAMMA-GLUTAMYLTRANSFERASE INCREASED [None]
  - LIVER FUNCTION TEST ABNORMAL [None]
